FAERS Safety Report 8433525-2 (Version None)
Quarter: 2012Q2

REPORT INFORMATION
  Report Type: 
  Country: None (occurrence: None)
  Receive Date: 20120613
  Receipt Date: 20120529
  Transmission Date: 20120825
  Serious: Yes (Hospitalization, Other)
  Sender: FDA-Public Use
  Company Number: AT-JNJFOC-20111212723

PATIENT
  Age: 39 Year
  Sex: Female

DRUGS (8)
  1. ARIPIPRAZOLE [Interacting]
     Indication: SCHIZOAFFECTIVE DISORDER
     Route: 065
  2. HALOPERIDOL [Suspect]
     Route: 065
  3. ARIPIPRAZOLE [Interacting]
     Route: 065
  4. VENLAFAXINE HCL [Concomitant]
     Route: 065
  5. HALOPERIDOL [Suspect]
     Indication: SCHIZOAFFECTIVE DISORDER
     Dosage: 7.5 MG TO 5 MG PER DAY FOR 7 DAYS
     Route: 065
  6. ARIPIPRAZOLE [Interacting]
     Route: 065
  7. HALOPERIDOL [Suspect]
     Route: 065
  8. VENLAFAXINE HCL [Concomitant]
     Route: 065

REACTIONS (3)
  - SEDATION [None]
  - DRUG INTERACTION [None]
  - SCHIZOPHRENIA [None]
